FAERS Safety Report 12191489 (Version 1)
Quarter: 2016Q1

REPORT INFORMATION
  Report Type: Spontaneous
  Country: FR (occurrence: FR)
  Receive Date: 20160318
  Receipt Date: 20160318
  Transmission Date: 20160526
  Serious: Yes (Hospitalization)
  Sender: FDA-Public Use
  Company Number: FR-BAXTER-2016BAX011775

PATIENT
  Age: 21 Year
  Sex: Male

DRUGS (6)
  1. ENDOXAN 1000 MG, POUDRE POUR SOLUTION INJECTABLE [Suspect]
     Active Substance: CYCLOPHOSPHAMIDE
     Indication: HENOCH-SCHONLEIN PURPURA
     Route: 042
     Dates: start: 20160216, end: 20160216
  2. ABSTRAL [Suspect]
     Active Substance: FENTANYL CITRATE
     Indication: ARTHRALGIA
     Dosage: ON REQUEST
     Route: 048
     Dates: start: 20160215
  3. ABSTRAL [Suspect]
     Active Substance: FENTANYL CITRATE
     Dosage: RECEIVED AT 04:20 A.M.
     Route: 048
     Dates: start: 20160216, end: 20160216
  4. MESNA EG [Suspect]
     Active Substance: MESNA
     Indication: DETOXIFICATION
     Route: 042
     Dates: start: 20160217, end: 20160217
  5. DUROGESIC [Suspect]
     Active Substance: FENTANYL
     Indication: ARTHRALGIA
     Route: 062
     Dates: start: 20160216, end: 20160219
  6. UROMITEXAN 400, COMPRIME PELLICULE SECABLE [Suspect]
     Active Substance: MESNA
     Indication: DETOXIFICATION
     Dosage: AT 02:50 PM, 06:45 PM AND 09:00 PM
     Route: 048
     Dates: start: 20160216, end: 20160216

REACTIONS (5)
  - Pyrexia [Recovered/Resolved]
  - Nausea [Recovered/Resolved]
  - Vomiting [Recovered/Resolved]
  - Diarrhoea [Recovered/Resolved]
  - Localised oedema [Recovered/Resolved]

NARRATIVE: CASE EVENT DATE: 20160216
